FAERS Safety Report 10812159 (Version 3)
Quarter: 2015Q2

REPORT INFORMATION
  Report Type: Spontaneous
  Country: JP (occurrence: JP)
  Receive Date: 20150218
  Receipt Date: 20150413
  Transmission Date: 20150821
  Serious: Yes (Hospitalization, Other)
  Sender: FDA-Public Use
  Company Number: JP-ROCHE-1539627

PATIENT
  Age: 50 Year
  Sex: Female
  Weight: 40 kg

DRUGS (5)
  1. LEFTOSE [Concomitant]
     Indication: INFLUENZA
     Dosage: DOSAGE IS UNCERTAIN.
     Route: 048
     Dates: start: 20150128
  2. TAMIFLU [Suspect]
     Active Substance: OSELTAMIVIR PHOSPHATE
     Indication: INFLUENZA
     Dosage: DATE OF MOST RECENT DOSE: 01/FEB/2015
     Route: 048
     Dates: start: 20150128, end: 20150201
  3. HUSTAZOL (CLOPERASTINE FENDIZOATE) [Concomitant]
     Indication: INFLUENZA
     Dosage: DOSAGE IS UNCERTAIN.
     Route: 048
     Dates: start: 20150128
  4. CALONAL [Concomitant]
     Active Substance: ACETAMINOPHEN
     Indication: INFLUENZA
     Dosage: DOSAGE IS UNCERTAIN.
     Route: 048
  5. TRANSAMIN [Concomitant]
     Active Substance: TRANEXAMIC ACID
     Dosage: DOSAGE IS UNCERTAIN.
     Route: 065

REACTIONS (2)
  - Speech disorder [Recovered/Resolved]
  - Abnormal behaviour [Recovered/Resolved]

NARRATIVE: CASE EVENT DATE: 20150131
